FAERS Safety Report 7132945-6 (Version None)
Quarter: 2010Q4

REPORT INFORMATION
  Report Type: 
  Country: None (occurrence: None)
  Receive Date: 20101117
  Receipt Date: 20101103
  Transmission Date: 20110411
  Serious: No
  Sender: FDA-Public Use
  Company Number: SPI201000285

PATIENT
  Age: 40 Year
  Sex: Female
  Weight: 71.7 kg

DRUGS (5)
  1. AMITIZA [Suspect]
     Indication: GASTROINTESTINAL HYPOMOTILITY
     Dosage: 24 MCG, QD, ORAL, 24 MCG, BID, ORAL, 8 MCG, QD, ORAL
     Route: 048
     Dates: start: 20101014, end: 20101019
  2. AMITIZA [Suspect]
     Indication: GASTROINTESTINAL HYPOMOTILITY
     Dosage: 24 MCG, QD, ORAL, 24 MCG, BID, ORAL, 8 MCG, QD, ORAL
     Route: 048
     Dates: start: 20101019, end: 20101021
  3. AMITIZA [Suspect]
     Indication: GASTROINTESTINAL HYPOMOTILITY
     Dosage: 24 MCG, QD, ORAL, 24 MCG, BID, ORAL, 8 MCG, QD, ORAL
     Route: 048
     Dates: start: 20101029
  4. COVARYX H.S. (ESTERIFIED ESTROGENS AND METHYLTESTOSTERONE) [Concomitant]
  5. TOPAMAX [Concomitant]

REACTIONS (6)
  - ABDOMINAL DISTENSION [None]
  - DRUG INEFFECTIVE [None]
  - DYSPNOEA [None]
  - FLUID RETENTION [None]
  - JOINT SWELLING [None]
  - OEDEMA PERIPHERAL [None]
